FAERS Safety Report 5664033-X (Version None)
Quarter: 2008Q1

REPORT INFORMATION
  Report Type: 
  Country: None (occurrence: None)
  Receive Date: 20080314
  Receipt Date: 20080306
  Transmission Date: 20080703
  Serious: Yes (Death)
  Sender: FDA-Public Use
  Company Number: PHHY2008JP02308

PATIENT
  Age: 64 Year
  Sex: Female
  Weight: 47 kg

DRUGS (11)
  1. GLEEVEC [Suspect]
     Indication: CHRONIC MYELOID LEUKAEMIA
     Dosage: 400 MG
     Route: 048
     Dates: start: 20080214, end: 20080215
  2. HYDREA [Concomitant]
     Indication: CHRONIC MYELOID LEUKAEMIA
     Dosage: 500 MG/DAY
     Route: 048
     Dates: start: 20080208, end: 20080213
  3. HYDREA [Concomitant]
     Dosage: 2000 MG/DAY
     Route: 048
  4. ACTOS [Concomitant]
     Indication: DIABETES MELLITUS
     Dosage: 15 MG/DAY
     Route: 048
     Dates: start: 20080109, end: 20080213
  5. ADALAT [Concomitant]
     Indication: HYPERTENSION
     Dosage: 20 MG/DAY
     Route: 048
     Dates: start: 20071024, end: 20080213
  6. ASPIRIN [Concomitant]
     Indication: ARTERIOSCLEROSIS
     Dosage: 100 MG/DAY
     Route: 048
     Dates: start: 20050302, end: 20080213
  7. MEVALOTIN [Concomitant]
     Indication: HYPERLIPIDAEMIA
     Dosage: 5 MG/DAY
     Route: 048
     Dates: start: 20070207, end: 20080213
  8. MERCAZOLE [Concomitant]
     Indication: BASEDOW'S DISEASE
     Dosage: 5 MG/DAY
     Route: 048
     Dates: start: 20050302, end: 20080213
  9. BLOPRESS [Concomitant]
     Indication: HYPERTENSION
     Dosage: 4 MG/DAY
     Route: 048
     Dates: start: 20070328, end: 20080213
  10. GLIMICRON [Concomitant]
     Indication: DIABETES MELLITUS
     Dosage: 20 MG/DAY
     Route: 048
     Dates: start: 20060201, end: 20080213
  11. BOSMIN [Concomitant]

REACTIONS (4)
  - ARRHYTHMIA [None]
  - CARDIAC FAILURE ACUTE [None]
  - CARDIO-RESPIRATORY ARREST [None]
  - LOSS OF CONSCIOUSNESS [None]
